FAERS Safety Report 24292245 (Version 1)
Quarter: 2024Q3

REPORT INFORMATION
  Report Type: Spontaneous
  Country: US (occurrence: None)
  Receive Date: 20240906
  Receipt Date: 20240906
  Transmission Date: 20241016
  Serious: No
  Sender: DOMPE FARMACEUTICI
  Company Number: US-FARMAPROD-202307-2256

PATIENT
  Age: 80 Year
  Sex: Female

DRUGS (3)
  1. OXERVATE [Suspect]
     Active Substance: CENEGERMIN-BKBJ
     Indication: Neurotrophic keratopathy
     Route: 047
     Dates: start: 20230725
  2. OXERVATE [Suspect]
     Active Substance: CENEGERMIN-BKBJ
  3. XYZAL [Concomitant]
     Active Substance: LEVOCETIRIZINE DIHYDROCHLORIDE

REACTIONS (7)
  - Product use issue [Recovered/Resolved]
  - Dry eye [Recovered/Resolved]
  - Ocular discomfort [Not Recovered/Not Resolved]
  - Photophobia [Not Recovered/Not Resolved]
  - Respiratory disorder [Unknown]
  - Nausea [Unknown]
  - Sinus pain [Unknown]

NARRATIVE: CASE EVENT DATE: 20230701
